FAERS Safety Report 9379283 (Version 1)
Quarter: 2013Q3

REPORT INFORMATION
  Report Type: Report from Study
  Country: DE (occurrence: DE)
  Receive Date: 20130702
  Receipt Date: 20130702
  Transmission Date: 20140515
  Serious: Yes (Death)
  Sender: FDA-Public Use
  Company Number: DE-ASTRAZENECA-2013SE49144

PATIENT
  Age: 84 Year
  Sex: Female

DRUGS (2)
  1. PROPOFOL [Suspect]
     Indication: SEDATION
     Route: 042
  2. MIDAZOLAM [Suspect]
     Indication: SEDATION

REACTIONS (2)
  - Respiratory failure [Fatal]
  - Hypotension [Fatal]
